FAERS Safety Report 12905220 (Version 1)
Quarter: 2016Q4

REPORT INFORMATION
  Report Type: Report from Study
  Country: US (occurrence: US)
  Receive Date: 20161102
  Receipt Date: 20161102
  Transmission Date: 20170207
  Serious: No
  Sender: FDA-Public Use
  Company Number: US-AMGEN-USASL2016151770

PATIENT
  Age: 65 Year
  Sex: Female

DRUGS (1)
  1. ENBREL [Suspect]
     Active Substance: ETANERCEPT
     Indication: RHEUMATOID ARTHRITIS
     Dosage: UNK UNK, ONCE A WEEK
     Route: 065

REACTIONS (8)
  - Injection site erythema [Unknown]
  - Pain in extremity [Recovering/Resolving]
  - Injection site swelling [Unknown]
  - Paraesthesia [Unknown]
  - Headache [Unknown]
  - Injection site pruritus [Unknown]
  - Joint stiffness [Recovering/Resolving]
  - Injection site rash [Unknown]
